FAERS Safety Report 20862800 (Version 1)
Quarter: 2022Q2

REPORT INFORMATION
  Report Type: Spontaneous
  Country: BR (occurrence: BR)
  Receive Date: 20220523
  Receipt Date: 20220523
  Transmission Date: 20220720
  Serious: Yes (Other)
  Sender: FDA-Public Use
  Company Number: BR-PFIZER INC-202200717629

PATIENT
  Age: 50 Year
  Sex: Male

DRUGS (1)
  1. SUTENT [Suspect]
     Active Substance: SUNITINIB MALATE
     Dosage: 1 TABLET PER DAY DURING 28 DAYS IN A ROW. CYCLES EVERY 6 WEEKS

REACTIONS (2)
  - Nephrectomy [Unknown]
  - Product dose omission issue [Unknown]
